FAERS Safety Report 6154238-6 (Version None)
Quarter: 2009Q2

REPORT INFORMATION
  Report Type: 
  Country: None (occurrence: None)
  Receive Date: 20090414
  Receipt Date: 20090409
  Transmission Date: 20091009
  Serious: Yes (Hospitalization)
  Sender: FDA-Public Use
  Company Number: FR-ABBOTT-09P-056-0567435-00

PATIENT
  Age: 88 Year
  Sex: Female

DRUGS (8)
  1. ESTAZOLAM [Suspect]
     Indication: DRUG USE FOR UNKNOWN INDICATION
     Route: 048
  2. ACETAMINOPHEN W/ PROPOXYPHENE HCL [Interacting]
     Indication: DRUG USE FOR UNKNOWN INDICATION
     Route: 048
  3. NOROXIN [Interacting]
     Indication: DRUG USE FOR UNKNOWN INDICATION
     Route: 048
  4. TAHOR [Interacting]
     Indication: DRUG USE FOR UNKNOWN INDICATION
     Route: 048
  5. BISOPROLOL FUMARATE [Interacting]
     Indication: DRUG USE FOR UNKNOWN INDICATION
  6. SPIRONOLACTONE [Interacting]
     Indication: DRUG USE FOR UNKNOWN INDICATION
     Route: 048
  7. FERROUS SULFATE TAB [Interacting]
     Indication: DRUG USE FOR UNKNOWN INDICATION
  8. DAFALGAN [Interacting]
     Indication: DRUG USE FOR UNKNOWN INDICATION

REACTIONS (2)
  - DRUG INTERACTION [None]
  - FALL [None]
